FAERS Safety Report 4648945-1 (Version None)
Quarter: 2005Q2

REPORT INFORMATION
  Report Type: 
  Country: None (occurrence: None)
  Receive Date: 20050427
  Receipt Date: 20050411
  Transmission Date: 20051028
  Serious: Yes (Other)
  Sender: FDA-Public Use
  Company Number: USA050495387

PATIENT
  Age: 70 Year
  Sex: Female

DRUGS (3)
  1. HUMULIN N [Suspect]
     Indication: DIABETES MELLITUS
     Dosage: 22 U IN THE MORNING
     Dates: start: 19940101
  2. HUMULIN R [Suspect]
     Indication: DIABETES MELLITUS
     Dates: start: 19940101
  3. FORTEO [Suspect]
     Indication: BONE DENSITY DECREASED
     Dosage: 20 UG/1 IN THE EVENING
     Dates: start: 20050316

REACTIONS (8)
  - ALOPECIA [None]
  - ARTHRITIS [None]
  - BLOOD GLUCOSE INCREASED [None]
  - BONE DENSITY DECREASED [None]
  - BREAST CANCER [None]
  - NASOPHARYNGITIS [None]
  - SCOLIOSIS [None]
  - SPINAL COLUMN STENOSIS [None]
